FAERS Safety Report 7619738-8 (Version None)
Quarter: 2011Q3

REPORT INFORMATION
  Report Type: 
  Country: None (occurrence: None)
  Receive Date: 20110719
  Receipt Date: 20110713
  Transmission Date: 20111222
  Serious: Yes (Hospitalization)
  Sender: FDA-Public Use
  Company Number: BE-AMGEN-BELSP2011030291

PATIENT
  Age: 44 Year
  Sex: Male
  Weight: 85 kg

DRUGS (5)
  1. NPLATE [Suspect]
     Indication: PRODUCT USED FOR UNKNOWN INDICATION
     Dosage: UNK UNK, QWK
     Route: 058
     Dates: start: 20110331, end: 20110428
  2. CELLCEPT [Concomitant]
     Dosage: UNK
     Route: 048
     Dates: start: 20101101
  3. OMEPRAZOLE [Concomitant]
     Dosage: 20 MG, UNK
     Route: 048
     Dates: start: 20101101
  4. NOXAFIL [Concomitant]
     Dosage: 200 MG, TID
     Route: 048
     Dates: start: 20100701
  5. BACTRIM DS [Concomitant]

REACTIONS (1)
  - LEUKAEMIA RECURRENT [None]
